FAERS Safety Report 12299107 (Version 1)
Quarter: 2016Q2

REPORT INFORMATION
  Report Type: Spontaneous
  Country: None (occurrence: None)
  Receive Date: 20160422
  Receipt Date: 20160422
  Transmission Date: 20160815
  Serious: No
  Sender: FDA-Public Use
  Company Number: None

PATIENT
  Age: 54 Year
  Sex: Female

DRUGS (2)
  1. EXEMESTANE. [Suspect]
     Active Substance: EXEMESTANE
  2. AFINITOR [Suspect]
     Active Substance: EVEROLIMUS
     Route: 048

REACTIONS (6)
  - Blood calcium abnormal [None]
  - Therapy change [None]
  - Fatigue [None]
  - Stomatitis [None]
  - Liver function test abnormal [None]
  - Renal function test abnormal [None]

NARRATIVE: CASE EVENT DATE: 20160420
